FAERS Safety Report 17375562 (Version 1)
Quarter: 2020Q1

REPORT INFORMATION
  Report Type: Spontaneous
  Country: SI (occurrence: SI)
  Receive Date: 20200206
  Receipt Date: 20200206
  Transmission Date: 20200409
  Serious: Yes (Hospitalization)
  Sender: FDA-Public Use
  Company Number: SI-TEVA-2020-SI-1181892

PATIENT
  Age: 22 Year
  Sex: Male

DRUGS (13)
  1. AMOKSIKLAV 1,2 G [Concomitant]
     Dosage: ON 6 JANUARY 2020 ONLY ONE DOSE IN THE MORNING
     Dates: start: 20200104, end: 20200106
  2. TAZOCIN 4 G / 0.5 G [Concomitant]
     Route: 042
     Dates: start: 20200108, end: 20200117
  3. PANSEMYL 20 MG [Concomitant]
  4. LEKADOL 1000 MG [Suspect]
     Active Substance: ACETAMINOPHEN
     Route: 048
     Dates: start: 20200109, end: 20200110
  5. SUMAMED 500 MG [Suspect]
     Active Substance: AZITHROMYCIN
     Indication: LOWER RESPIRATORY TRACT INFECTION BACTERIAL
     Dosage: 500 MILLIGRAM
     Route: 048
     Dates: start: 20200106, end: 20200111
  6. LEKADOL 1000 MG [Suspect]
     Active Substance: ACETAMINOPHEN
     Route: 048
     Dates: start: 20200104, end: 20200104
  7. NEODOLPASSE 75 MG/30 MG [Concomitant]
     Dosage: 75MG/30MG, 1-2 DOSE 2X/DAY AS NECESSARY
     Dates: start: 20200107, end: 20200111
  8. FRAXIPARIN 0,4 [Concomitant]
  9. LEKADOL 1000 MG [Suspect]
     Active Substance: ACETAMINOPHEN
     Indication: PAIN
     Dosage: 1000 MILLIGRAM
     Route: 048
     Dates: start: 20200111, end: 20200112
  10. ZALDIAR [Suspect]
     Active Substance: ACETAMINOPHEN\TRAMADOL HYDROCHLORIDE
     Dosage: 37,5 MG/325 MG
     Dates: start: 20200105, end: 20200108
  11. TAZOCIN 4 G / 0,5 G [Concomitant]
     Dosage: 4.5 GRAM
     Route: 042
     Dates: start: 20200106, end: 20200107
  12. LEKADOL 1000 MG [Suspect]
     Active Substance: ACETAMINOPHEN
     Route: 048
     Dates: start: 20200105, end: 20200108
  13. ZALDIAR [Suspect]
     Active Substance: ACETAMINOPHEN\TRAMADOL HYDROCHLORIDE
     Indication: PAIN
     Dosage: 37,5 MG/325 MG
     Route: 048
     Dates: start: 20200112, end: 20200113

REACTIONS (1)
  - Hepatic enzyme increased [Recovered/Resolved]

NARRATIVE: CASE EVENT DATE: 20200113
